FAERS Safety Report 8000097-6 (Version None)
Quarter: 2011Q4

REPORT INFORMATION
  Report Type: 
  Country: None (occurrence: None)
  Receive Date: 20111222
  Receipt Date: 20111209
  Transmission Date: 20120403
  Serious: Yes (Death, Hospitalization, Other)
  Sender: FDA-Public Use
  Company Number: US-ELI_LILLY_AND_COMPANY-US201008004688

PATIENT
  Sex: Female
  Weight: 38.095 kg

DRUGS (18)
  1. CITALOPRAM [Concomitant]
  2. ROBAXIN [Concomitant]
  3. LIDODERM [Concomitant]
  4. MIRALAX [Concomitant]
  5. FORTEO [Suspect]
     Dosage: 20 UG, DAILY (1/D)
     Route: 058
     Dates: start: 20100101
  6. MULTI-VITAMIN [Concomitant]
  7. LORAZEPAM [Concomitant]
  8. SIMVASTATIN [Concomitant]
  9. NEXIUM [Concomitant]
  10. FORTEO [Suspect]
     Dosage: 20 UG, QD
     Route: 058
  11. LIBRAX [Concomitant]
  12. ASPIRIN [Concomitant]
  13. LYRICA [Concomitant]
  14. GABAPENTIN [Concomitant]
  15. CALCIUM + VITAMIN D [Concomitant]
  16. ZANAFLEX [Concomitant]
  17. FENTANYL [Concomitant]
  18. OXYCODONE HCL [Concomitant]

REACTIONS (6)
  - HIP FRACTURE [None]
  - EMOTIONAL DISORDER [None]
  - MALAISE [None]
  - FALL [None]
  - UPPER LIMB FRACTURE [None]
  - DEATH [None]
